FAERS Safety Report 6556638-9 (Version None)
Quarter: 2010Q1

REPORT INFORMATION
  Report Type: 
  Country: None (occurrence: None)
  Receive Date: 20100125
  Receipt Date: 20100114
  Transmission Date: 20100710
  Serious: Yes (Hospitalization)
  Sender: FDA-Public Use
  Company Number: 2010010033

PATIENT
  Age: 48 Year
  Sex: Male

DRUGS (4)
  1. PENICILLAMINE [Suspect]
     Dosage: (DAILY)
  2. ASPIRIN [Suspect]
     Dosage: (DAILY)
  3. NON-STEROIDAL ANTIINFLAMMATORY [Suspect]
     Dosage: (DAILY)
  4. PREDNISOLONE [Suspect]
     Dosage: (DAILY)

REACTIONS (18)
  - ABDOMINAL ADHESIONS [None]
  - AORTIC ANEURYSM [None]
  - AORTO-DUODENAL FISTULA [None]
  - BACK PAIN [None]
  - BLOOD PRESSURE DIASTOLIC INCREASED [None]
  - CULTURE TISSUE SPECIMEN POSITIVE [None]
  - DIZZINESS [None]
  - DUODENITIS [None]
  - GASTRITIS [None]
  - HAEMATOCRIT DECREASED [None]
  - HAEMOGLOBIN DECREASED [None]
  - HEART RATE INCREASED [None]
  - HYPERHIDROSIS [None]
  - MELAENA [None]
  - OESOPHAGEAL ULCER [None]
  - PALPITATIONS [None]
  - SALMONELLOSIS [None]
  - SYNCOPE [None]
